FAERS Safety Report 7924759-1 (Version None)
Quarter: 2011Q4

REPORT INFORMATION
  Report Type: 
  Country: None (occurrence: None)
  Receive Date: 20111118
  Receipt Date: 20110328
  Transmission Date: 20120403
  Serious: No
  Sender: FDA-Public Use
  Company Number: US-AMGEN-USASP2011016505

PATIENT
  Sex: Male

DRUGS (6)
  1. PREDNISONE TAB [Concomitant]
     Dosage: 1 MG, UNK
  2. AZULFIDINE [Concomitant]
     Dosage: 500 UNK, UNK
  3. PAXIL [Concomitant]
     Dosage: 10 MG, UNK
  4. ENBREL [Suspect]
     Indication: PRODUCT USED FOR UNKNOWN INDICATION
     Dosage: 50 MG, QWK
  5. CALCIUM D                          /00944201/ [Concomitant]
  6. GINSENG                            /00480901/ [Concomitant]
     Dosage: 250 MG, UNK

REACTIONS (1)
  - NASOPHARYNGITIS [None]
